FAERS Safety Report 9977031 (Version 1)
Quarter: 2014Q1

REPORT INFORMATION
  Report Type: Report from Study
  Country: US (occurrence: US)
  Receive Date: 20140306
  Receipt Date: 20140306
  Transmission Date: 20141002
  Serious: No
  Sender: FDA-Public Use
  Company Number: US-ABBVIE-13P-163-1164520-00

PATIENT
  Sex: Male

DRUGS (2)
  1. HUMIRA [Suspect]
     Indication: CROHN^S DISEASE
     Route: 058
     Dates: start: 20130531
  2. HUMIRA [Suspect]
     Dosage: EVERY 2 WEEKS FOR 90 DAYS
     Route: 058

REACTIONS (2)
  - Impaired healing [Recovered/Resolved]
  - Wound infection [Recovered/Resolved]
